FAERS Safety Report 16583452 (Version 2)
Quarter: 2019Q3

REPORT INFORMATION
  Report Type: Spontaneous
  Country: US (occurrence: US)
  Receive Date: 20190717
  Receipt Date: 20190723
  Transmission Date: 20191004
  Serious: Yes (Hospitalization, Other)
  Sender: FDA-Public Use
  Company Number: US-APOTEX-2019AP018341

PATIENT
  Age: 25 Year
  Sex: Female

DRUGS (1)
  1. CITALOPRAM [Suspect]
     Active Substance: CITALOPRAM HYDROBROMIDE
     Indication: SUICIDE ATTEMPT
     Dosage: UNK
     Route: 065

REACTIONS (8)
  - Hyperthermia [Unknown]
  - Seizure [Unknown]
  - Tachycardia [Unknown]
  - Neuromyopathy [Recovered/Resolved]
  - Serotonin syndrome [Unknown]
  - Toxicity to various agents [Unknown]
  - Drug level increased [Unknown]
  - Intentional overdose [Unknown]
